FAERS Safety Report 8082109-7 (Version None)
Quarter: 2012Q1

REPORT INFORMATION
  Report Type: 
  Country: None (occurrence: None)
  Receive Date: 20120127
  Receipt Date: 20110210
  Transmission Date: 20120608
  Serious: No
  Sender: FDA-Public Use
  Company Number: US-ABBOTT-11P-163-0704126-00

PATIENT
  Age: 59 Year
  Sex: Male

DRUGS (1)
  1. HUMIRA [Suspect]
     Indication: CROHN'S DISEASE
     Dates: start: 20101115, end: 20110202

REACTIONS (6)
  - RECTAL HAEMORRHAGE [None]
  - DRUG INEFFECTIVE [None]
  - CROHN'S DISEASE [None]
  - PROCTALGIA [None]
  - DIARRHOEA [None]
  - FREQUENT BOWEL MOVEMENTS [None]
